FAERS Safety Report 11636330 (Version 1)
Quarter: 2015Q4

REPORT INFORMATION
  Report Type: Spontaneous
  Country: US (occurrence: None)
  Receive Date: 20151015
  Receipt Date: 20151015
  Transmission Date: 20160304
  Serious: Yes (Other)
  Sender: FDA-Public Use
  Company Number: None

PATIENT
  Age: 62 Year
  Sex: Female

DRUGS (1)
  1. ENBREL [Suspect]
     Active Substance: ETANERCEPT
     Indication: RHEUMATOID ARTHRITIS
     Dosage: 1 ML (50 MG/ML) ONCE WEEKLY SQ
     Route: 058
     Dates: start: 20121031

REACTIONS (2)
  - Rheumatoid arthritis [None]
  - Therapy cessation [None]

NARRATIVE: CASE EVENT DATE: 201510
